FAERS Safety Report 23884299 (Version 1)
Quarter: 2024Q2

REPORT INFORMATION
  Report Type: Spontaneous
  Country: RO (occurrence: RO)
  Receive Date: 20240522
  Receipt Date: 20240522
  Transmission Date: 20240715
  Serious: Yes (Life-Threatening, Other)
  Sender: FDA-Public Use
  Company Number: RO-ABBVIE-5769038

PATIENT
  Age: 40 Year
  Sex: Female

DRUGS (1)
  1. RINVOQ [Suspect]
     Active Substance: UPADACITINIB
     Indication: Rheumatoid arthritis
     Dosage: FORM STRENGTH:15 MILLIGRAM
     Route: 048
     Dates: start: 202308, end: 20240322

REACTIONS (2)
  - Ischaemic stroke [Unknown]
  - Major depression [Unknown]

NARRATIVE: CASE EVENT DATE: 20240322
